FAERS Safety Report 8477803-X (Version None)
Quarter: 2012Q2

REPORT INFORMATION
  Report Type: 
  Country: None (occurrence: None)
  Receive Date: 20120629
  Receipt Date: 20120625
  Transmission Date: 20120825
  Serious: Yes (Hospitalization, Other)
  Sender: FDA-Public Use
  Company Number: JP-BAYER-2011-103741

PATIENT
  Age: 54 Year
  Sex: Male

DRUGS (3)
  1. NEXAVAR [Suspect]
     Indication: HEPATIC NEOPLASM MALIGNANT
     Dosage: 400 MG, QD
     Route: 048
     Dates: start: 20110818, end: 20111117
  2. NEXAVAR [Suspect]
     Dosage: 400 MG, QD
     Route: 048
     Dates: start: 20110908, end: 20111117
  3. NEXAVAR [Suspect]
     Dosage: 200 MG, QD
     Route: 048
     Dates: start: 20111208

REACTIONS (11)
  - LIVER FUNCTION TEST ABNORMAL [None]
  - HYPERTENSION [None]
  - BLOOD CREATININE INCREASED [None]
  - ERYTHEMA [None]
  - OEDEMA PERIPHERAL [None]
  - ASCITES [None]
  - PAIN [None]
  - PALMAR-PLANTAR ERYTHRODYSAESTHESIA SYNDROME [None]
  - DIARRHOEA [None]
  - HAEMOGLOBIN DECREASED [None]
  - FEELING HOT [None]
